FAERS Safety Report 7862263 (Version 4)
Quarter: 2013Q4

REPORT INFORMATION
  Report Type: Report from Study
  Country: CA (occurrence: CA)
  Receive Date: 20110318
  Receipt Date: 20131023
  Transmission Date: 20140711
  Serious: Yes (Hospitalization)
  Sender: FDA-Public Use
  Company Number: CA-ROCHE-764891

PATIENT
  Age: 55 Year
  Sex: Male
  Weight: 76.2 kg

DRUGS (9)
  1. TOCILIZUMAB [Suspect]
     Indication: RHEUMATOID ARTHRITIS
     Dosage: FORM: INFUSION
     Route: 042
     Dates: start: 20101103, end: 20110623
  2. PREDNISONE [Concomitant]
  3. LEFLUNOMIDE [Concomitant]
  4. TYLENOL COLD PRODUCT NOS [Concomitant]
     Dosage: PRN (AS NECESSARY)
     Route: 065
  5. ACTONEL [Concomitant]
  6. AVALIDE [Concomitant]
  7. CELEXA (CITALOPRAM HYDROBROMIDE) [Concomitant]
  8. RANITIDINE [Concomitant]
  9. GABAPENTIN [Concomitant]

REACTIONS (2)
  - Infection [Recovered/Resolved]
  - Tendon operation [Unknown]
